FAERS Safety Report 5455201-0 (Version None)
Quarter: 2007Q3

REPORT INFORMATION
  Report Type: 
  Country: None (occurrence: None)
  Receive Date: 20070918
  Receipt Date: 20070906
  Transmission Date: 20080115
  Serious: Yes (Disabling)
  Sender: FDA-Public Use
  Company Number: JP-JNJFOC-20070902707

PATIENT
  Age: 78 Year
  Sex: Female

DRUGS (5)
  1. LEVOFLOXACIN [Suspect]
     Indication: CYSTITIS
     Route: 048
  2. MICARDIS [Concomitant]
     Route: 065
  3. DEPAKENE [Concomitant]
     Route: 065
  4. EBRANTIL [Concomitant]
     Route: 065
  5. MAGMITT [Concomitant]
     Route: 065

REACTIONS (1)
  - DYSKINESIA [None]
